FAERS Safety Report 5371725-9 (Version None)
Quarter: 2007Q2

REPORT INFORMATION
  Report Type: 
  Country: None (occurrence: None)
  Receive Date: 20070619
  Receipt Date: 20070228
  Transmission Date: 20071010
  Serious: No
  Sender: FDA-Public Use
  Company Number: 2007US000540

PATIENT
  Age: 65 Year
  Sex: Male

DRUGS (12)
  1. VESICARE [Suspect]
     Indication: URINARY INCONTINENCE
     Dosage: 5 MG, UID/QD, ORAL
     Route: 048
     Dates: start: 20070201
  2. INSULIN [Concomitant]
  3. MONOPRIL [Concomitant]
  4. PROZAC [Concomitant]
  5. PRILOSEC [Concomitant]
  6. ASPIRIN [Concomitant]
  7. REQUIP [Concomitant]
  8. LYRICA [Concomitant]
  9. LASIX [Concomitant]
  10. DOXAZOSIN (DOXAZOSIN MESILATE) [Concomitant]
  11. PERCOCET [Concomitant]
  12. ZOCOR [Concomitant]

REACTIONS (2)
  - DRUG INEFFECTIVE [None]
  - POLLAKIURIA [None]
